FAERS Safety Report 5008957-5 (Version None)
Quarter: 2006Q2

REPORT INFORMATION
  Report Type: 
  Country: None (occurrence: None)
  Receive Date: 20060404
  Receipt Date: 20051111
  Transmission Date: 20061013
  Serious: No
  Sender: FDA-Public Use
  Company Number: US200511000355

PATIENT
  Age: 19 Year
  Sex: Female

DRUGS (2)
  1. PROZAC [Suspect]
     Indication: BULIMIA NERVOSA
     Dosage: 10 MG, DAILY (1/D)
     Dates: start: 20050301
  2. CYMBALTA [Suspect]
     Indication: BULIMIA NERVOSA
     Dosage: 60 MG, DAILY (1/D)
     Dates: start: 20050301

REACTIONS (1)
  - BREAST DISCHARGE [None]
